FAERS Safety Report 4306853-X (Version None)
Quarter: 2004Q1

REPORT INFORMATION
  Report Type: 
  Country: None (occurrence: None)
  Receive Date: 20040225
  Receipt Date: 20040211
  Transmission Date: 20041129
  Serious: Yes (Hospitalization)
  Sender: FDA-Public Use
  Company Number: EWC040238042

PATIENT
  Age: 25 Year
  Sex: Male
  Weight: 65 kg

DRUGS (5)
  1. OLANZAPINE [Suspect]
     Indication: SCHIZOPHRENIA, DISORGANISED TYPE
     Dosage: 20 MG/DAY
     Dates: start: 20001107, end: 20031229
  2. CLOZAPINE [Concomitant]
  3. PROTHAZIN (PROMETHAZINE HYDROCHLORIDE) [Concomitant]
  4. AKINETON [Concomitant]
  5. LOKREN (BETAXOLOL HYDROCHLORIDE) [Concomitant]

REACTIONS (9)
  - DYSURIA [None]
  - GLOMERULAR FILTRATION RATE DECREASED [None]
  - NEPHROPATHY TOXIC [None]
  - POLYDIPSIA [None]
  - POLYURIA [None]
  - RENAL IMPAIRMENT [None]
  - RENAL TUBULAR DISORDER [None]
  - TREATMENT NONCOMPLIANCE [None]
  - URINARY TRACT INFECTION [None]
